FAERS Safety Report 6786275-2 (Version None)
Quarter: 2010Q2

REPORT INFORMATION
  Report Type: 
  Country: None (occurrence: None)
  Receive Date: 20100623
  Receipt Date: 20100614
  Transmission Date: 20101027
  Serious: Yes (Death)
  Sender: FDA-Public Use
  Company Number: JP-ROCHE-710345

PATIENT
  Sex: Male

DRUGS (8)
  1. CAPECITABINE [Suspect]
     Indication: COLON CANCER METASTATIC
     Route: 048
     Dates: start: 20081119, end: 20081202
  2. CAPECITABINE [Suspect]
     Route: 048
     Dates: start: 20081210, end: 20081223
  3. CAPECITABINE [Suspect]
     Route: 048
     Dates: start: 20090107, end: 20090120
  4. CAPECITABINE [Suspect]
     Route: 048
     Dates: start: 20090128, end: 20090210
  5. CAPECITABINE [Suspect]
     Route: 048
     Dates: start: 20090218, end: 20090303
  6. CAPECITABINE [Suspect]
     Route: 048
     Dates: start: 20090311, end: 20090324
  7. CAPECITABINE [Suspect]
     Route: 048
     Dates: start: 20090401, end: 20090414
  8. CAPECITABINE [Suspect]
     Route: 048
     Dates: start: 20090422, end: 20090505

REACTIONS (1)
  - COMPLETED SUICIDE [None]
